FAERS Safety Report 7358458-4 (Version None)
Quarter: 2011Q1

REPORT INFORMATION
  Report Type: 
  Country: None (occurrence: None)
  Receive Date: 20110314
  Receipt Date: 20110314
  Transmission Date: 20110831
  Serious: Yes (Other)
  Sender: FDA-Public Use
  Company Number: None

PATIENT
  Sex: Male
  Weight: 103.2 kg

DRUGS (2)
  1. TRICOR [Suspect]
     Dosage: 145 MG ONE DAILY ORALLY
     Route: 048
     Dates: start: 20100623, end: 20100726
  2. PRAVACHOL [Suspect]
     Dosage: 40 MG ONE DAILY ORALLY
     Route: 048
     Dates: start: 20080926, end: 20090102

REACTIONS (8)
  - HEADACHE [None]
  - DIZZINESS [None]
  - HIGH DENSITY LIPOPROTEIN INCREASED [None]
  - FATIGUE [None]
  - HYPOTENSION [None]
  - FLATULENCE [None]
  - HYPERHIDROSIS [None]
  - FEELING COLD [None]
